FAERS Safety Report 9202490 (Version 1)
Quarter: 2013Q2

REPORT INFORMATION
  Report Type: Spontaneous
  Country: US (occurrence: US)
  Receive Date: 20130401
  Receipt Date: 20130401
  Transmission Date: 20140414
  Serious: Yes (Hospitalization, Other)
  Sender: FDA-Public Use
  Company Number: US-ASTRAZENECA-2013SE19333

PATIENT
  Age: 76 Year
  Sex: Male

DRUGS (9)
  1. ROSUVASTATIN [Suspect]
     Route: 048
  2. DENOSUMAB [Interacting]
     Route: 058
  3. METOPROLOL TARTRATE [Concomitant]
  4. METFORMIN [Concomitant]
  5. BENAZEPRIL [Concomitant]
  6. WARFARIN [Concomitant]
  7. LEVOTHYROXINE [Concomitant]
  8. ABIRATERONE [Concomitant]
  9. PREDNISONE [Concomitant]

REACTIONS (2)
  - Drug interaction [Unknown]
  - Rhabdomyolysis [Unknown]
